FAERS Safety Report 17178429 (Version 23)
Quarter: 2021Q3

REPORT INFORMATION
  Report Type: Report from Study
  Country: GB (occurrence: GB)
  Receive Date: 20191219
  Receipt Date: 20210928
  Transmission Date: 20211014
  Serious: Yes (Hospitalization, Other)
  Sender: FDA-Public Use
  Company Number: GB-TAKEDA-2019TUS072085

PATIENT
  Age: 74 Year
  Sex: Male

DRUGS (106)
  1. IXAZOMIB [Suspect]
     Active Substance: IXAZOMIB
     Dosage: 4 MILLIGRAM, 1/WEEK
     Route: 048
     Dates: start: 20190615, end: 20190619
  2. IXAZOMIB [Suspect]
     Active Substance: IXAZOMIB
     Dosage: 4 MILLIGRAM, 1/WEEK
     Route: 048
     Dates: start: 20190803, end: 20190809
  3. DEXAMETHASONE. [Suspect]
     Active Substance: DEXAMETHASONE
     Indication: PLASMA CELL MYELOMA
     Dosage: UNK
     Route: 048
  4. DEXAMETHASONE. [Suspect]
     Active Substance: DEXAMETHASONE
     Dosage: 20 MILLIGRAM, 1/WEEK
     Route: 048
     Dates: start: 20191213, end: 20191228
  5. REVLIMID [Suspect]
     Active Substance: LENALIDOMIDE
     Indication: PLASMA CELL MYELOMA
     Dosage: 25 MILLIGRAM, OD
     Route: 048
     Dates: start: 20180821, end: 20180909
  6. REVLIMID [Suspect]
     Active Substance: LENALIDOMIDE
     Dosage: 25 MILLIGRAM, OD
     Route: 048
     Dates: start: 20180917, end: 20181007
  7. REVLIMID [Suspect]
     Active Substance: LENALIDOMIDE
     Dosage: 25 MILLIGRAM, OD
     Route: 048
     Dates: start: 20190614, end: 20190704
  8. REVLIMID [Suspect]
     Active Substance: LENALIDOMIDE
     Dosage: 25 MILLIGRAM
     Route: 048
     Dates: start: 20191112, end: 20191202
  9. REVLIMID [Suspect]
     Active Substance: LENALIDOMIDE
     Dosage: 25 MILLIGRAM, QD
     Route: 048
     Dates: start: 20191210
  10. REVLIMID [Suspect]
     Active Substance: LENALIDOMIDE
     Dosage: UNK
     Route: 048
  11. PANTOPRAZOLE [Concomitant]
     Active Substance: PANTOPRAZOLE
     Dosage: 80 MILLIGRAM
     Route: 048
     Dates: start: 20191016
  12. PANTOPRAZOLE [Concomitant]
     Active Substance: PANTOPRAZOLE
     Dosage: 80 MILLIGRAM, QD
     Route: 048
     Dates: start: 20191016
  13. CALCICHEW D3 [Concomitant]
     Active Substance: CALCIUM\CHOLECALCIFEROL
     Indication: PROPHYLAXIS
     Dosage: UNK, QD
     Route: 048
     Dates: start: 20190212, end: 20191015
  14. SODIUM FLUORIDE. [Concomitant]
     Active Substance: SODIUM FLUORIDE
     Dosage: 90 MILLILITRE, QD
     Route: 048
     Dates: start: 20190103
  15. ALTRAPLEN COMPACT [Concomitant]
     Indication: MALNUTRITION
     Dosage: 1 CARTON
     Route: 048
     Dates: start: 20191117
  16. TRIMETHOPRIM. [Concomitant]
     Active Substance: TRIMETHOPRIM
     Indication: PROPHYLAXIS
     Dosage: 10 MILLILITER
     Route: 048
     Dates: start: 20191011
  17. CALCIUM CARBONATE. [Concomitant]
     Active Substance: CALCIUM CARBONATE
     Indication: MALNUTRITION
     Dosage: UNK UNK, BID
     Route: 048
     Dates: start: 20190103, end: 20191011
  18. IXAZOMIB [Suspect]
     Active Substance: IXAZOMIB
     Indication: PLASMA CELL MYELOMA
     Dosage: 4 MILLIGRAM, 1/WEEK
     Route: 048
     Dates: start: 20190615, end: 20190615
  19. DEXAMETHASONE. [Suspect]
     Active Substance: DEXAMETHASONE
     Dosage: 20 MILLIGRAM, QW
     Route: 048
     Dates: start: 20190614, end: 20190830
  20. DEXAMETHASONE. [Suspect]
     Active Substance: DEXAMETHASONE
     Dosage: UNK
     Route: 048
  21. DEXAMETHASONE. [Suspect]
     Active Substance: DEXAMETHASONE
     Dosage: UNK
     Route: 065
  22. REVLIMID [Suspect]
     Active Substance: LENALIDOMIDE
     Dosage: 25 MILLIGRAM, OD
     Route: 048
     Dates: start: 20181112, end: 20181202
  23. REVLIMID [Suspect]
     Active Substance: LENALIDOMIDE
     Dosage: 25 MILLIGRAM, OD
     Route: 048
     Dates: start: 20190712, end: 20190801
  24. REVLIMID [Suspect]
     Active Substance: LENALIDOMIDE
     Dosage: 25 MILLIGRAM
     Route: 048
     Dates: start: 20191213, end: 20191231
  25. METOPROLOL. [Concomitant]
     Active Substance: METOPROLOL
     Indication: HYPERTENSION
     Dosage: 50 MILLIGRAM, QD
     Route: 048
  26. PANTOPRAZOLE [Concomitant]
     Active Substance: PANTOPRAZOLE
     Indication: PROPHYLAXIS
     Dosage: 20 MILLIGRAM, OD
     Route: 048
     Dates: start: 20190102, end: 20191015
  27. AMLODIPINE [Concomitant]
     Active Substance: AMLODIPINE BESYLATE
     Dosage: 10 MILLIGRAM, QD
     Route: 048
  28. ASPIRIN. [Concomitant]
     Active Substance: ASPIRIN
     Indication: PROPHYLAXIS
     Dosage: 75 MILLIGRAM
     Route: 048
  29. PROCAL [Concomitant]
     Active Substance: SODIUM FLUORIDE
     Indication: MALNUTRITION
     Dosage: 90 MILLILITER, QD
     Route: 048
     Dates: start: 20190103
  30. FOLIC ACID. [Concomitant]
     Active Substance: FOLIC ACID
     Indication: ANAEMIA
     Dosage: 5 MILLIGRAM, QD
     Route: 048
  31. SODIUM FLUORIDE. [Concomitant]
     Active Substance: SODIUM FLUORIDE
     Indication: MALNUTRITION
     Dosage: 90 MILLILITER, QD
     Route: 048
     Dates: start: 20190103
  32. ASPIRINE [Concomitant]
     Active Substance: ASPIRIN
     Dosage: 75 MILLIGRAM, QD
     Route: 048
  33. COPPER SULFATE [Concomitant]
     Active Substance: CUPRIC SULFATE ANHYDROUS
     Dosage: UNK
     Route: 065
  34. LIDOCAINE. [Concomitant]
     Active Substance: LIDOCAINE
     Indication: TONGUE COATED
     Dosage: 10 MILLILITER, TID
     Route: 048
     Dates: start: 20191116, end: 20191220
  35. IXAZOMIB [Suspect]
     Active Substance: IXAZOMIB
     Dosage: 4 MILLIGRAM, 1/WEEK
     Route: 048
     Dates: start: 20190615, end: 20190622
  36. DEXAMETHASONE. [Suspect]
     Active Substance: DEXAMETHASONE
     Dosage: 20 MILLIGRAM, QW
     Route: 048
     Dates: start: 20180821, end: 20190101
  37. DEXAMETHASONE. [Suspect]
     Active Substance: DEXAMETHASONE
     Dosage: UNK
     Route: 065
  38. REVLIMID [Suspect]
     Active Substance: LENALIDOMIDE
     Dosage: 25 MILLIGRAM, OD
     Route: 048
     Dates: start: 20181210, end: 20181231
  39. CYCLOPHOSPHAMIDE. [Concomitant]
     Active Substance: CYCLOPHOSPHAMIDE
     Dosage: 300 MILLIGRAM, QW
     Route: 048
     Dates: start: 20191213, end: 20191228
  40. CALCICHEW D3 [Concomitant]
     Active Substance: CALCIUM\CHOLECALCIFEROL
     Dosage: UNK, QD
     Route: 048
     Dates: start: 20191016, end: 20191029
  41. CALCICHEW D3 [Concomitant]
     Active Substance: CALCIUM\CHOLECALCIFEROL
     Dosage: 2 DOSAGE FORM, TID, 2 TABLET
     Route: 048
     Dates: start: 20190103, end: 20190211
  42. SCANDISHAKE MIX [Concomitant]
     Active Substance: DIETARY SUPPLEMENT
     Indication: MALNUTRITION
     Dosage: 1 CARTON
     Route: 048
     Dates: start: 20190102, end: 20191029
  43. MEGACE [Concomitant]
     Active Substance: MEGESTROL ACETATE
     Dosage: 15 MILLILITER, QD
     Route: 048
     Dates: start: 20191019
  44. MYCOSTATIN [Concomitant]
     Active Substance: NYSTATIN
     Dosage: 1 DOSAGE FORM, UNK
     Route: 048
     Dates: start: 20190104
  45. IXAZOMIB [Suspect]
     Active Substance: IXAZOMIB
     Dosage: 4 MILLIGRAM, 1/WEEK
     Route: 048
     Dates: start: 20190629, end: 20190713
  46. IXAZOMIB [Suspect]
     Active Substance: IXAZOMIB
     Dosage: 4 MILLIGRAM, 1/WEEK
     Route: 048
     Dates: start: 20190620, end: 20190802
  47. REVLIMID [Suspect]
     Active Substance: LENALIDOMIDE
     Dosage: 25 MILLIGRAM, OD
     Route: 048
     Dates: start: 20181015, end: 20181104
  48. REVLIMID [Suspect]
     Active Substance: LENALIDOMIDE
     Dosage: 25 MILLIGRAM, OD
     Route: 048
     Dates: start: 20191213, end: 20191231
  49. CYCLOPHOSPHAMIDE. [Concomitant]
     Active Substance: CYCLOPHOSPHAMIDE
     Dosage: 11100 MILLIGRAM
     Route: 065
     Dates: start: 2019, end: 20191213
  50. CYCLOPHOSPHAMIDE. [Concomitant]
     Active Substance: CYCLOPHOSPHAMIDE
     Dosage: 300 MILLIGRAM, OD
     Route: 048
     Dates: start: 20190907, end: 20191010
  51. CYCLOPHOSPHAMIDE. [Concomitant]
     Active Substance: CYCLOPHOSPHAMIDE
     Dosage: UNK
     Route: 065
     Dates: end: 20191213
  52. DECAPEPTYL [Concomitant]
     Dosage: 45 MILLIGRAM
     Route: 065
     Dates: start: 20190515
  53. SEPTRIN [Concomitant]
     Active Substance: SULFAMETHOXAZOLE\TRIMETHOPRIM
     Indication: PROPHYLAXIS
     Dosage: 10 MILLILITER, QD
     Route: 048
     Dates: start: 20191011
  54. CALCICHEW D3 [Concomitant]
     Active Substance: CALCIUM\CHOLECALCIFEROL
     Indication: BONE DISORDER
     Dosage: UNK, QD
     Route: 048
     Dates: start: 20190103, end: 20190211
  55. CALCICHEW D3 [Concomitant]
     Active Substance: CALCIUM\CHOLECALCIFEROL
     Dosage: 2 DOSAGE FORM, OD, 2 TABLET
     Route: 048
     Dates: start: 20191016, end: 20191029
  56. AMLODIPINE [Concomitant]
     Active Substance: AMLODIPINE BESYLATE
     Dosage: 10 MILLIGRAM, QD
     Route: 048
  57. AMLODIPINE [Concomitant]
     Active Substance: AMLODIPINE BESYLATE
     Dosage: 10 MILLIGRAM, OD
     Route: 048
     Dates: end: 20191204
  58. ZOLPIDEM [Concomitant]
     Active Substance: ZOLPIDEM TARTRATE
     Indication: PROPHYLAXIS
     Dosage: 10 MILLIGRAM, UNK
     Route: 048
     Dates: start: 20180816, end: 20191029
  59. COTRIMOXAZOLE [Concomitant]
     Active Substance: SULFAMETHOXAZOLE\TRIMETHOPRIM
     Indication: ANTIFUNGAL PROPHYLAXIS
     Dosage: 480 MILLIGRAM, OD
     Route: 048
     Dates: start: 20180817, end: 20191015
  60. COTRIMOXAZOLE [Concomitant]
     Active Substance: SULFAMETHOXAZOLE\TRIMETHOPRIM
     Dosage: 480 MILLIGRAM, OD
     Route: 048
     Dates: start: 20180817, end: 20191015
  61. INFLUENZA VIRUS [Concomitant]
     Active Substance: INFLUENZA VIRUS VACCINE
     Indication: PROPHYLAXIS
     Dosage: 1 DOSAGE FORM (1 AMPULE), OD,
     Route: 065
     Dates: start: 20191112, end: 20191112
  62. ASPIRINE [Concomitant]
     Active Substance: ASPIRIN
     Dosage: 75 MILLIGRAM, QD
     Route: 048
  63. DEXAMETHASONE. [Suspect]
     Active Substance: DEXAMETHASONE
     Dosage: 20 MILLIGRAM, QW
     Route: 048
     Dates: start: 20190906, end: 20191228
  64. REVLIMID [Suspect]
     Active Substance: LENALIDOMIDE
     Dosage: 25 MILLIGRAM, OD
     Route: 048
     Dates: start: 20190906, end: 20191231
  65. CYCLOPHOSPHAMIDE. [Concomitant]
     Active Substance: CYCLOPHOSPHAMIDE
     Dosage: 4 MILLIGRAM, QW
     Route: 048
     Dates: start: 20191213, end: 20191226
  66. PANTOPRAZOLE [Concomitant]
     Active Substance: PANTOPRAZOLE
     Dosage: 40 MILLIGRAM, BID
     Route: 048
     Dates: start: 20191016
  67. VALACICLOVIR [Concomitant]
     Active Substance: VALACYCLOVIR HYDROCHLORIDE
     Indication: PROPHYLAXIS
     Dosage: 500 MILLIGRAM, OD
     Route: 048
     Dates: start: 20190817
  68. AMLODIPINE [Concomitant]
     Active Substance: AMLODIPINE BESYLATE
     Dosage: 10 MILLIGRAM, OD
     Route: 048
     Dates: end: 20191204
  69. COTRIMOXAZOLE [Concomitant]
     Active Substance: SULFAMETHOXAZOLE\TRIMETHOPRIM
     Indication: ANTIFUNGAL PROPHYLAXIS
     Dosage: 480 MILLIGRAM, OD
     Route: 048
     Dates: start: 20180817, end: 20191015
  70. MYCOSTATIN [Concomitant]
     Active Substance: NYSTATIN
     Indication: TONGUE COATED
     Dosage: UNK
     Route: 065
  71. MYCOSTATIN [Concomitant]
     Active Substance: NYSTATIN
     Dosage: 3 MILLILITER, TID
     Route: 048
     Dates: start: 20191116, end: 20191220
  72. VITAMINS NOS [Concomitant]
     Active Substance: VITAMINS
     Indication: MALNUTRITION
     Dosage: UNK, QD
     Route: 048
     Dates: start: 20190102, end: 20191029
  73. IXAZOMIB [Suspect]
     Active Substance: IXAZOMIB
     Dosage: 4 MILLIGRAM, 1/WEEK
     Route: 048
     Dates: start: 20190810, end: 20190824
  74. CYCLOPHOSPHAMIDE. [Concomitant]
     Active Substance: CYCLOPHOSPHAMIDE
     Dosage: 300 MILLIGRAM, QD
     Route: 048
     Dates: start: 20191010
  75. CYCLOPHOSPHAMIDE. [Concomitant]
     Active Substance: CYCLOPHOSPHAMIDE
     Dosage: UNK
     Route: 065
     Dates: end: 2019
  76. AMLODIPINE [Concomitant]
     Active Substance: AMLODIPINE BESYLATE
     Indication: HYPERTENSION
     Dosage: 10 MILLIGRAM
     Route: 048
     Dates: end: 20191204
  77. BUDESONIDE. [Concomitant]
     Active Substance: BUDESONIDE
     Indication: CHRONIC OBSTRUCTIVE PULMONARY DISEASE
     Dosage: 1 MILLIGRAM, QD
     Route: 048
     Dates: start: 20200107
  78. MYCOSTATIN [Concomitant]
     Active Substance: NYSTATIN
     Dosage: 3 MILLILITER
     Route: 048
     Dates: start: 20191116, end: 20191220
  79. VITAMIN D NOS [Concomitant]
     Active Substance: VITAMIN D NOS
     Indication: MALNUTRITION
     Dosage: UNK UNK, BID
     Route: 048
     Dates: start: 20190103, end: 20191011
  80. TRIMETHOPRIM. [Concomitant]
     Active Substance: TRIMETHOPRIM
     Indication: ANTIFUNGAL PROPHYLAXIS
     Dosage: 480 MILLIGRAM, QD
     Route: 048
  81. IXAZOMIB [Suspect]
     Active Substance: IXAZOMIB
     Dosage: 4 MILLIGRAM, 1/WEEK
     Route: 048
     Dates: start: 20191213, end: 20191226
  82. DEXAMETHASONE. [Suspect]
     Active Substance: DEXAMETHASONE
     Dosage: 20 MILLIGRAM
     Route: 048
     Dates: start: 20190609, end: 20191228
  83. REVLIMID [Suspect]
     Active Substance: LENALIDOMIDE
     Dosage: 25 MILLIGRAM, QD
     Route: 048
     Dates: start: 20191006, end: 20191231
  84. METOPROLOL. [Concomitant]
     Active Substance: METOPROLOL
     Dosage: 50 MILLIGRAM, QD
     Route: 048
  85. TINZAPARIN [Concomitant]
     Active Substance: TINZAPARIN
     Indication: PROPHYLAXIS
     Dosage: 10000 INTERNATIONAL UNIT, OD
     Route: 058
     Dates: start: 20190110
  86. CALCICHEW D3 [Concomitant]
     Active Substance: CALCIUM\CHOLECALCIFEROL
     Dosage: 2 TABLET
     Route: 048
     Dates: start: 20190103, end: 20190211
  87. CALCICHEW D3 [Concomitant]
     Active Substance: CALCIUM\CHOLECALCIFEROL
     Dosage: 2 TABLET
     Route: 048
     Dates: start: 20190212, end: 20191015
  88. CALCICHEW D3 [Concomitant]
     Active Substance: CALCIUM\CHOLECALCIFEROL
     Dosage: 2 DOSAGE FORM, BID, 2 TABLET
     Route: 048
     Dates: start: 20190212, end: 20191015
  89. MEGACE [Concomitant]
     Active Substance: MEGESTROL ACETATE
     Dosage: 15 MILLILITER
     Route: 048
     Dates: start: 20191011
  90. FORTISIP [Concomitant]
     Active Substance: CARBOHYDRATES\FATTY ACIDS\MINERALS\PROTEIN\VITAMINS
     Indication: MALNUTRITION
     Dosage: UNK, BID
     Route: 048
     Dates: start: 20190103, end: 20191011
  91. CHLORHEXIDINE [Concomitant]
     Active Substance: CHLORHEXIDINE
     Indication: TONGUE COATED
     Dosage: 10 MILLILITER, TID
     Route: 048
     Dates: start: 20191116, end: 20191220
  92. MYCOSTATIN [Concomitant]
     Active Substance: NYSTATIN
     Indication: PROPHYLAXIS
     Dosage: 1 MILLILITER, TID
     Route: 048
     Dates: start: 20191116, end: 20191220
  93. CENTRUM [Concomitant]
     Active Substance: VITAMINS
     Indication: PROPHYLAXIS
     Dosage: UNK, QD
     Route: 048
     Dates: start: 20190104
  94. VITAMINS NOS [Concomitant]
     Active Substance: VITAMINS
     Indication: PROPHYLAXIS
     Dosage: UNK, QD
     Route: 048
     Dates: start: 20190104
  95. REVLIMID [Suspect]
     Active Substance: LENALIDOMIDE
     Dosage: 25 MILLIGRAM, OD
     Route: 048
     Dates: start: 20190809, end: 20190829
  96. REVLIMID [Suspect]
     Active Substance: LENALIDOMIDE
     Dosage: 25 MILLIGRAM, OD
     Route: 048
     Dates: start: 20190906, end: 20191010
  97. CYCLOPHOSPHAMIDE. [Concomitant]
     Active Substance: CYCLOPHOSPHAMIDE
     Indication: PLASMA CELL MYELOMA
     Dosage: 300 MILLIGRAM, OD
     Route: 048
     Dates: start: 20190907, end: 20191010
  98. DECAPEPTYL [Concomitant]
     Indication: PROSTATE CANCER
     Dosage: 11.25 MILLIGRAM
     Route: 065
     Dates: start: 20190515
  99. METOPROLOL. [Concomitant]
     Active Substance: METOPROLOL
     Dosage: 50 MILLIGRAM, QD
     Route: 048
  100. METOPROLOL. [Concomitant]
     Active Substance: METOPROLOL
     Dosage: 50 MILLIGRAM
     Route: 048
  101. INFLUENZA VACCINE [Concomitant]
     Active Substance: INFLUENZA VIRUS VACCINE
     Indication: PROPHYLAXIS
     Dosage: UNK, QD
     Route: 065
     Dates: start: 20191112, end: 20191112
  102. MEGACE [Concomitant]
     Active Substance: MEGESTROL ACETATE
     Indication: MALNUTRITION
     Dosage: 7.5 MILLILITER, BID
     Route: 048
     Dates: start: 20191011
  103. ZOLEDRONIC ACID [Concomitant]
     Active Substance: ZOLEDRONIC ACID
     Indication: PROPHYLAXIS
     Dosage: 4 MILLIGRAM, OD
     Route: 041
     Dates: start: 20181106
  104. CENTRUM [Concomitant]
     Active Substance: VITAMINS
     Dosage: 1 DOSAGE FORM, QD
     Route: 048
     Dates: start: 20190104
  105. FORTICAL [Concomitant]
     Active Substance: CALCITONIN SALMON
     Indication: MALNUTRITION
     Dosage: UNK UNK, BID
     Route: 048
     Dates: start: 20190103, end: 20191011
  106. COLECALCIFEROL [Concomitant]
     Active Substance: CHOLECALCIFEROL
     Dosage: UNK
     Route: 065

REACTIONS (5)
  - Respiratory tract infection [Recovered/Resolved]
  - Thrombocytopenia [Recovered/Resolved]
  - Platelet count decreased [Recovered/Resolved]
  - Respiratory tract infection viral [Not Recovered/Not Resolved]
  - Respiratory tract infection bacterial [Recovered/Resolved]

NARRATIVE: CASE EVENT DATE: 20191002
